FAERS Safety Report 9519148 (Version 1)
Quarter: 2013Q1

REPORT INFORMATION
  Report Type: Spontaneous
  Country: US (occurrence: None)
  Receive Date: 20130305
  Receipt Date: 20130305
  Transmission Date: 20140127
  Serious: Yes (Hospitalization)
  Sender: FDA-Public Use
  Company Number: 163-21880-12010444

PATIENT
  Age: 73 Year
  Sex: Male

DRUGS (2)
  1. REVLIMID [Suspect]
     Indication: MANTLE CELL LYMPHOMA
     Dosage: 15 MG, DAILY, PO
     Route: 048
     Dates: start: 20111115, end: 20120103
  2. RITUXAN (RITUXIMAB) [Concomitant]

REACTIONS (3)
  - Pyrexia [None]
  - Fatigue [None]
  - Cough [None]
